FAERS Safety Report 24391391 (Version 1)
Quarter: 2024Q4

REPORT INFORMATION
  Report Type: Spontaneous
  Country: US (occurrence: US)
  Receive Date: 20241003
  Receipt Date: 20241003
  Transmission Date: 20250115
  Serious: Yes (Death, Other)
  Sender: PFIZER
  Company Number: US-PFIZER INC-PV202400126772

PATIENT
  Age: 71 Year
  Sex: Female

DRUGS (5)
  1. DAPTOMYCIN [Suspect]
     Active Substance: DAPTOMYCIN
     Indication: Prosthetic valve endocarditis
     Dosage: UNK
  2. RIFAMPIN [Suspect]
     Active Substance: RIFAMPIN
     Indication: Prosthetic valve endocarditis
     Dosage: UNK
  3. CEFTRIAXONE [Concomitant]
     Active Substance: CEFTRIAXONE
     Indication: Evidence based treatment
     Dosage: UNK
  4. VANCOMYCIN [Concomitant]
     Active Substance: VANCOMYCIN
     Indication: Evidence based treatment
     Dosage: UNK
  5. APIXABAN [Concomitant]
     Active Substance: APIXABAN
     Dosage: UNK

REACTIONS (1)
  - Drug ineffective [Fatal]
